FAERS Safety Report 10142307 (Version 2)
Quarter: 2014Q4

REPORT INFORMATION
  Report Type: Spontaneous
  Country: US (occurrence: US)
  Receive Date: 20140430
  Receipt Date: 20141016
  Transmission Date: 20150528
  Serious: No
  Sender: FDA-Public Use
  Company Number: US-009507513-1404USA012018

PATIENT
  Age: 59 Year
  Sex: Male

DRUGS (5)
  1. AMLODIPINE [Concomitant]
     Active Substance: AMLODIPINE BESYLATE
  2. PRILOSEC [Concomitant]
     Active Substance: OMEPRAZOLE MAGNESIUM
  3. SINGULAIR [Suspect]
     Active Substance: MONTELUKAST SODIUM
     Indication: ASTHMA
     Dosage: STRENGTH : 10 MG
     Route: 048
     Dates: start: 2004
  4. PROAIR HFA [Concomitant]
     Active Substance: ALBUTEROL SULFATE
  5. FLOVENT [Concomitant]
     Active Substance: FLUTICASONE PROPIONATE

REACTIONS (7)
  - Gastrooesophageal reflux disease [Unknown]
  - Dyspnoea [Unknown]
  - Nausea [Unknown]
  - Product quality issue [Unknown]
  - Chest discomfort [Unknown]
  - Asthma [Unknown]
  - Dyspepsia [Unknown]

NARRATIVE: CASE EVENT DATE: 20140418
